FAERS Safety Report 17367948 (Version 1)
Quarter: 2020Q1

REPORT INFORMATION
  Report Type: Spontaneous
  Country: ES (occurrence: ES)
  Receive Date: 20200204
  Receipt Date: 20200204
  Transmission Date: 20200409
  Serious: Yes (Hospitalization)
  Sender: FDA-Public Use
  Company Number: ES-PFIZER INC-2019291004

PATIENT
  Age: 18 Day
  Sex: Male

DRUGS (2)
  1. ALDACTONE [Suspect]
     Active Substance: SPIRONOLACTONE
     Indication: CARDIAC FAILURE
     Dosage: UNK UNK, AS NEEDED
     Route: 048
     Dates: start: 20190328, end: 20190408
  2. HIDROCLOROTIAZIDA [Suspect]
     Active Substance: HYDROCHLOROTHIAZIDE
     Indication: CARDIAC FAILURE
     Dosage: UNK UNK, AS NEEDED
     Route: 048
     Dates: start: 20190328, end: 20190408

REACTIONS (1)
  - Neonatal hyponatraemia [Recovered/Resolved]

NARRATIVE: CASE EVENT DATE: 20190408
